FAERS Safety Report 13900389 (Version 1)
Quarter: 2017Q3

REPORT INFORMATION
  Report Type: Spontaneous
  Country: US (occurrence: None)
  Receive Date: 20170818
  Receipt Date: 20170818
  Transmission Date: 20171127
  Serious: Yes (Hospitalization)
  Sender: FDA-Public Use
  Company Number: None

PATIENT
  Age: 53 Year
  Sex: Male
  Weight: 86.2 kg

DRUGS (5)
  1. CYCLOPHOSPHAMIDE. [Suspect]
     Active Substance: CYCLOPHOSPHAMIDE
     Dates: end: 20170809
  2. CYTARABINE. [Suspect]
     Active Substance: CYTARABINE
     Dates: end: 20170809
  3. ONCASPAR [Suspect]
     Active Substance: PEGASPARGASE
     Dates: end: 20170707
  4. MERCAPTOPURINE. [Suspect]
     Active Substance: MERCAPTOPURINE
     Dates: end: 20170809
  5. METHOTREXATE. [Suspect]
     Active Substance: METHOTREXATE
     Dates: end: 20170711

REACTIONS (12)
  - Pyrexia [None]
  - Hyperhidrosis [None]
  - Diarrhoea [None]
  - Pain in extremity [None]
  - Decreased appetite [None]
  - Nausea [None]
  - Fatigue [None]
  - Bacterial infection [None]
  - Tachycardia [None]
  - Dehydration [None]
  - Hypoaesthesia [None]
  - White blood cell count increased [None]

NARRATIVE: CASE EVENT DATE: 20170810
